FAERS Safety Report 9605267 (Version 1)
Quarter: 2013Q4

REPORT INFORMATION
  Report Type: Spontaneous
  Country: JP (occurrence: JP)
  Receive Date: 20131008
  Receipt Date: 20131008
  Transmission Date: 20140711
  Serious: Yes (Other)
  Sender: FDA-Public Use
  Company Number: JP-GLAXOSMITHKLINE-B0928069A

PATIENT
  Sex: Male

DRUGS (2)
  1. PAXIL [Suspect]
     Indication: SCHIZOPHRENIA
     Route: 048
     Dates: end: 20051123
  2. PIPAMPERONE [Concomitant]
     Route: 048
     Dates: end: 20051123

REACTIONS (6)
  - Self injurious behaviour [Unknown]
  - Homicide [Unknown]
  - Irritability [Unknown]
  - Homicidal ideation [Unknown]
  - Akathisia [Unknown]
  - Tremor [Unknown]
